FAERS Safety Report 6137104-1 (Version None)
Quarter: 2009Q1

REPORT INFORMATION
  Report Type: 
  Country: None (occurrence: None)
  Receive Date: 20090330
  Receipt Date: 20090317
  Transmission Date: 20090719
  Serious: Yes (Other)
  Sender: FDA-Public Use
  Company Number: FR-ROCHE-622887

PATIENT
  Age: 10 Year
  Sex: Female

DRUGS (1)
  1. ROFERON-A [Suspect]
     Dosage: DOSE : 3 MILLIONS IU.
     Route: 065

REACTIONS (2)
  - DRUG EFFECT DECREASED [None]
  - DRUG SPECIFIC ANTIBODY PRESENT [None]
